FAERS Safety Report 6059961-X (Version None)
Quarter: 2009Q1

REPORT INFORMATION
  Report Type: 
  Country: None (occurrence: None)
  Receive Date: 20090130
  Receipt Date: 20090127
  Transmission Date: 20090719
  Serious: No
  Sender: FDA-Public Use
  Company Number: US-B.I. PHARMACEUTICALS,INC./RIDGEFIELD-2009-BP-01027BP

PATIENT
  Age: 92 Year
  Sex: Male

DRUGS (5)
  1. FLOMAX [Suspect]
     Indication: BENIGN PROSTATIC HYPERPLASIA
     Dosage: .4MG
     Route: 048
     Dates: start: 20050101, end: 20081001
  2. PRIMIDONE [Concomitant]
     Indication: TREMOR
  3. PROPRANOLOL [Concomitant]
  4. TRIAMTERENE [Concomitant]
     Indication: HYPERTENSION
  5. FINASTERIDE [Concomitant]
     Indication: BENIGN PROSTATIC HYPERPLASIA

REACTIONS (2)
  - DRY MOUTH [None]
  - RHINORRHOEA [None]
